FAERS Safety Report 6740651-2 (Version None)
Quarter: 2010Q2

REPORT INFORMATION
  Report Type: 
  Country: None (occurrence: None)
  Receive Date: 20100521
  Receipt Date: 20100512
  Transmission Date: 20101027
  Serious: Yes (Other)
  Sender: FDA-Public Use
  Company Number: 009747

PATIENT
  Age: 17 Year
  Sex: Male

DRUGS (2)
  1. BUSULFEX [Suspect]
     Indication: STEM CELL TRANSPLANT
     Dosage: INTRAVENOUS
     Route: 042
     Dates: start: 20070201
  2. CYCLOPHOSPHAMIDE [Concomitant]

REACTIONS (2)
  - EWING'S SARCOMA [None]
  - PARAPARESIS [None]
